FAERS Safety Report 8133186 (Version 4)
Quarter: 2013Q2

REPORT INFORMATION
  Report Type: Report from Study
  Country: JP (occurrence: JP)
  Receive Date: 20110913
  Receipt Date: 20130514
  Transmission Date: 20140414
  Serious: Yes (Hospitalization)
  Sender: FDA-Public Use
  Company Number: JP-BAXTER-2011BH028750

PATIENT
  Age: 70 Year
  Sex: Female
  Weight: 39.9 kg

DRUGS (1)
  1. CYTOXAN_CYCLOPHOSPHAMIDE, MONOHYDRATE 1.00 G_POWDER FOR SOLUTION FOR I [Suspect]
     Indication: NON-SMALL CELL LUNG CANCER
     Route: 042
     Dates: start: 20110801, end: 20110801

REACTIONS (1)
  - Pneumonia bacterial [Recovered/Resolved]
